FAERS Safety Report 7249514-X (Version None)
Quarter: 2011Q1

REPORT INFORMATION
  Report Type: 
  Country: None (occurrence: None)
  Receive Date: 20110128
  Receipt Date: 20110118
  Transmission Date: 20110831
  Serious: Yes (Other)
  Sender: FDA-Public Use
  Company Number: PHFR2010GB05760

PATIENT
  Sex: Male

DRUGS (3)
  1. TEGRETOL [Suspect]
     Dosage: UNK MG, UNK
     Route: 048
  2. TEGRETOL [Suspect]
     Dosage: 250 MG, QID
     Route: 054
     Dates: start: 20101202, end: 20101223
  3. TEGRETOL [Suspect]
     Indication: EPILEPSY
     Dosage: 400 MG, BID
     Route: 049

REACTIONS (2)
  - OESOPHAGEAL NEOPLASM [None]
  - MALIGNANT DYSPHAGIA [None]
